FAERS Safety Report 5146163-4 (Version None)
Quarter: 2006Q4

REPORT INFORMATION
  Report Type: 
  Country: None (occurrence: None)
  Receive Date: 20061106
  Receipt Date: 20061106
  Transmission Date: 20070319
  Serious: Yes (Other)
  Sender: FDA-Public Use
  Company Number: None

PATIENT
  Age: 33 Year
  Sex: Male
  Weight: 81.6475 kg

DRUGS (5)
  1. BUPROPION HCL [Suspect]
     Indication: MAJOR DEPRESSION
     Dosage: 150 MG   BID   PO
     Route: 048
     Dates: start: 20060815, end: 20060902
  2. BUPROPION HCL [Suspect]
     Indication: OFF LABEL USE
     Dosage: 150 MG   BID   PO
     Route: 048
     Dates: start: 20060815, end: 20060902
  3. CLONIDINE [Concomitant]
  4. PROVIGIL [Concomitant]
  5. EFFEXOR XR [Concomitant]

REACTIONS (3)
  - REACTION TO DRUG EXCIPIENTS [None]
  - THERAPEUTIC RESPONSE UNEXPECTED WITH DRUG SUBSTITUTION [None]
  - URTICARIA [None]
